FAERS Safety Report 6251225-4 (Version None)
Quarter: 2009Q2

REPORT INFORMATION
  Report Type: 
  Country: None (occurrence: None)
  Receive Date: 20090630
  Receipt Date: 20090622
  Transmission Date: 20091009
  Serious: Yes (Other)
  Sender: FDA-Public Use
  Company Number: ID-ABBOTT-09P-079-0577443-00

PATIENT
  Age: 39 Year
  Sex: Female

DRUGS (1)
  1. LEUPLIN FOR INJECTION 3.75 MG [Suspect]
     Indication: ENDOMETRIOSIS
     Route: 050
     Dates: start: 20090301

REACTIONS (2)
  - PALPITATIONS [None]
  - RESPIRATORY DISTRESS [None]
